FAERS Safety Report 13628081 (Version 1)
Quarter: 2017Q2

REPORT INFORMATION
  Report Type: Spontaneous
  Country: US (occurrence: US)
  Receive Date: 20170607
  Receipt Date: 20170607
  Transmission Date: 20170830
  Serious: No
  Sender: FDA-Public Use
  Company Number: US-009507513-1705USA013105

PATIENT
  Age: 24 Year
  Sex: Female

DRUGS (2)
  1. M-M-R II [Suspect]
     Active Substance: MEASLES VIRUS STRAIN ENDERS^ ATTENUATED EDMONSTON LIVE ANTIGEN\MUMPS VIRUS STRAIN B LEVEL JERYL LYNN LIVE ANTIGEN\RUBELLA VIRUS STRAIN WISTAR RA 27/3 LIVE ANTIGEN
     Indication: PROPHYLAXIS
     Route: 058
     Dates: start: 20170524, end: 20170524
  2. STERILE DILUENT [Suspect]
     Active Substance: WATER
     Dosage: UNK
     Route: 058
     Dates: start: 20170524, end: 20170524

REACTIONS (1)
  - Pruritus generalised [Unknown]

NARRATIVE: CASE EVENT DATE: 20170524
